FAERS Safety Report 23138945 (Version 1)
Quarter: 2023Q4

REPORT INFORMATION
  Report Type: Spontaneous
  Country: US (occurrence: None)
  Receive Date: 20231101
  Receipt Date: 20231101
  Transmission Date: 20240109
  Serious: Yes (Other)
  Sender: FDA-Public Use
  Company Number: None

PATIENT
  Age: 64 Year
  Sex: Female
  Weight: 63 kg

DRUGS (4)
  1. TREMFYA [Suspect]
     Active Substance: GUSELKUMAB
     Indication: Psoriasis
     Dosage: OTHER FREQUENCY : EVERY 8 WEEKS;?
     Route: 058
     Dates: start: 20230710, end: 20231026
  2. acitretin capsules [Concomitant]
     Dates: start: 20230602
  3. CALCIPOTRIENE [Concomitant]
     Active Substance: CALCIPOTRIENE
     Dates: start: 20221207, end: 20230427
  4. CLOBETASOL [Concomitant]
     Active Substance: CLOBETASOL
     Dates: start: 20220412

REACTIONS (2)
  - Onychomycosis [None]
  - Onychomadesis [None]

NARRATIVE: CASE EVENT DATE: 20230801
